FAERS Safety Report 20140710 (Version 1)
Quarter: 2021Q4

REPORT INFORMATION
  Report Type: Spontaneous
  Country: BR (occurrence: BR)
  Receive Date: 20211202
  Receipt Date: 20211202
  Transmission Date: 20220303
  Serious: Yes (Other)
  Sender: FDA-Public Use
  Company Number: BR-NOVARTISPH-NVSC2020BR042762

PATIENT
  Sex: Female

DRUGS (1)
  1. TIMOLOL MALEATE\TRAVOPROST [Suspect]
     Active Substance: TIMOLOL MALEATE\TRAVOPROST
     Indication: Product used for unknown indication
     Dosage: 1 UNK (ONE DROP IN EACH EYE)
     Route: 065

REACTIONS (8)
  - Arrhythmia [Unknown]
  - Pain [Unknown]
  - Agitation [Unknown]
  - Insomnia [Unknown]
  - Feeling of despair [Unknown]
  - Emotional distress [Unknown]
  - Anxiety [Unknown]
  - Nervousness [Unknown]
